FAERS Safety Report 6656390-2 (Version None)
Quarter: 2010Q1

REPORT INFORMATION
  Report Type: 
  Country: None (occurrence: None)
  Receive Date: 20100329
  Receipt Date: 20100325
  Transmission Date: 20100710
  Serious: Yes (Hospitalization, Other)
  Sender: FDA-Public Use
  Company Number: FR-ROXANE LABORATORIES, INC.-2010-RO-00333RO

PATIENT
  Age: 34 Year
  Sex: Male

DRUGS (2)
  1. BUPRENORPHINE HYDROCHLORIDE [Suspect]
  2. HASHISH [Suspect]
     Route: 055

REACTIONS (4)
  - BONE INFARCTION [None]
  - DRUG ABUSE [None]
  - DRUG SCREEN POSITIVE [None]
  - OSTEONECROSIS [None]
